FAERS Safety Report 9385853 (Version 1)
Quarter: 2013Q3

REPORT INFORMATION
  Report Type: Spontaneous
  Country: FI (occurrence: FI)
  Receive Date: 20130705
  Receipt Date: 20130705
  Transmission Date: 20140515
  Serious: Yes (Other)
  Sender: FDA-Public Use
  Company Number: FI-WATSON-2013-11674

PATIENT
  Sex: 0

DRUGS (1)
  1. LEVONORGESTREL [Suspect]
     Indication: CONTRACEPTION
     Dosage: UNK
     Route: 064

REACTIONS (3)
  - Congenital cystic kidney disease [Unknown]
  - Renal dysplasia [Unknown]
  - Foetal exposure during pregnancy [Unknown]
